FAERS Safety Report 11072294 (Version 1)
Quarter: 2015Q2

REPORT INFORMATION
  Report Type: Spontaneous
  Country: US (occurrence: None)
  Receive Date: 20150427
  Receipt Date: 20150427
  Transmission Date: 20150821
  Serious: Yes (Hospitalization)
  Sender: FDA-Public Use
  Company Number: None

PATIENT
  Age: 76 Year
  Sex: Male
  Weight: 71 kg

DRUGS (8)
  1. JANUMET [Concomitant]
     Active Substance: METFORMIN HYDROCHLORIDE\SITAGLIPTIN PHOSPHATE
  2. LISINOPRIL. [Concomitant]
     Active Substance: LISINOPRIL
  3. REPAGLINIDE. [Suspect]
     Active Substance: REPAGLINIDE
     Indication: HYPERGLYCAEMIA
     Dosage: 1 TABLET TID ORAL
     Route: 048
  4. NIFEDIPINE ER [Concomitant]
     Active Substance: NIFEDIPINE
  5. HUMIRA [Concomitant]
     Active Substance: ADALIMUMAB
  6. OMEPRAZOLE. [Concomitant]
     Active Substance: OMEPRAZOLE
  7. CITALOPRAM [Concomitant]
     Active Substance: CITALOPRAM HYDROBROMIDE
  8. CHLORDIAZPOXIDE/CLIDINIUM [Concomitant]

REACTIONS (1)
  - Sinus arrest [None]

NARRATIVE: CASE EVENT DATE: 20150317
